FAERS Safety Report 4766144-X (Version None)
Quarter: 2005Q3

REPORT INFORMATION
  Report Type: 
  Country: None (occurrence: None)
  Receive Date: 20050909
  Receipt Date: 20050829
  Transmission Date: 20060218
  Serious: Yes (Hospitalization, Other)
  Sender: FDA-Public Use
  Company Number: WAES 0508PHL00006

PATIENT
  Age: 78 Year
  Sex: Male

DRUGS (6)
  1. COZAAR [Suspect]
     Indication: CARDIAC FAILURE CONGESTIVE
     Dosage: SEE IMAGE
     Route: 048
     Dates: start: 20030914, end: 20050726
  2. COZAAR [Suspect]
     Indication: CARDIAC FAILURE CONGESTIVE
     Dosage: SEE IMAGE
     Route: 048
     Dates: start: 20050728
  3. (THERAPY UNSPECIFIED) [Concomitant]
  4. ATORVASTATIN CALCIUM [Concomitant]
  5. CARVEDILOL [Concomitant]
  6. SPIRONOLACTONE [Concomitant]

REACTIONS (4)
  - CONDITION AGGRAVATED [None]
  - HERNIA PAIN [None]
  - INGUINAL HERNIA [None]
  - TENDERNESS [None]
